FAERS Safety Report 16501528 (Version 1)
Quarter: 2019Q3

REPORT INFORMATION
  Report Type: Spontaneous
  Country: US (occurrence: US)
  Receive Date: 20190629
  Receipt Date: 20190629
  Transmission Date: 20191004
  Serious: Yes (Other)
  Sender: FDA-Public Use
  Company Number: None

PATIENT
  Age: 11 Year
  Sex: Male
  Weight: 29.25 kg

DRUGS (3)
  1. PROBIOTIC [Concomitant]
     Active Substance: PROBIOTICS NOS
  2. MULTIVITAMIN [Concomitant]
     Active Substance: VITAMINS
  3. EQUATE CHILDRENS ALLERGY [Suspect]
     Active Substance: LORATADINE
     Indication: SEASONAL ALLERGY
     Dosage: ?          QUANTITY:2 TEASPOON(S);?
     Route: 048
     Dates: start: 20190619

REACTIONS (11)
  - Alice in wonderland syndrome [None]
  - Hyperhidrosis [None]
  - Pallor [None]
  - Pain [None]
  - Tremor [None]
  - Agitation [None]
  - Abdominal pain [None]
  - Dyskinesia [None]
  - Nausea [None]
  - Lethargy [None]
  - Fear [None]

NARRATIVE: CASE EVENT DATE: 20190628
